FAERS Safety Report 23668271 (Version 1)
Quarter: 2024Q1

REPORT INFORMATION
  Report Type: Spontaneous
  Country: ES (occurrence: ES)
  Receive Date: 20240325
  Receipt Date: 20240325
  Transmission Date: 20240409
  Serious: Yes (Hospitalization, Other)
  Sender: FDA-Public Use
  Company Number: None

PATIENT
  Age: 75 Year
  Sex: Female

DRUGS (2)
  1. OLANZAPINE [Interacting]
     Active Substance: OLANZAPINE
     Indication: Product used for unknown indication
     Dosage: UNK
     Route: 048
     Dates: start: 20231104, end: 20231104
  2. CLOTHIAPINE [Interacting]
     Active Substance: CLOTHIAPINE
     Indication: Product used for unknown indication
     Dosage: UNK
     Route: 048
     Dates: start: 20231104, end: 20231104

REACTIONS (4)
  - Depressed level of consciousness [Recovered/Resolved]
  - Suicide attempt [Unknown]
  - Intentional overdose [Recovered/Resolved]
  - Drug interaction [Unknown]

NARRATIVE: CASE EVENT DATE: 20231104
